FAERS Safety Report 10650994 (Version 1)
Quarter: 2014Q4

REPORT INFORMATION
  Report Type: Other
  Country: DE (occurrence: DE)
  Receive Date: 20141215
  Receipt Date: 20141215
  Transmission Date: 20150529
  Serious: Yes (Other)
  Sender: FDA-Public Use
  Company Number: DE-LUPIN PHARMACEUTICALS INC.-2014-01808

PATIENT
  Age: 33 Year
  Sex: Female
  Weight: 80 kg

DRUGS (13)
  1. PROTAPHANE [Concomitant]
     Active Substance: INSULIN HUMAN
     Indication: GESTATIONAL DIABETES
     Route: 058
  2. CELESTAN [Concomitant]
     Active Substance: BETAMETHASONE
     Indication: MATERNAL THERAPY TO ENHANCE FOETAL LUNG MATURITY
     Route: 030
     Dates: start: 20130116, end: 20130117
  3. PARTUSISTEN [Concomitant]
     Active Substance: FENOTEROL
     Indication: PREMATURE LABOUR
     Route: 042
     Dates: start: 20130111, end: 20130111
  4. CYTOTEC [Concomitant]
     Active Substance: MISOPROSTOL
     Indication: LABOUR INDUCTION
     Route: 048
     Dates: start: 20130308, end: 20130308
  5. QUILONUM [Suspect]
     Active Substance: LITHIUM CARBONATE
     Indication: BIPOLAR DISORDER
     Dosage: 1350 [MG/D (BIS 1150) ]
     Route: 048
  6. FOLSURE [Concomitant]
     Indication: PROPHYLAXIS OF NEURAL TUBE DEFECT
     Route: 048
  7. METFORMIN [Concomitant]
     Active Substance: METFORMIN HYDROCHLORIDE
     Indication: POLYCYSTIC OVARIES
     Dosage: 1500MG
     Route: 048
     Dates: end: 20120724
  8. CEFUROXIM [Concomitant]
     Active Substance: CEFUROXIME
     Indication: INFECTION PROPHYLAXIS
     Route: 042
     Dates: start: 20130308, end: 20130308
  9. AMOXYPEN [Concomitant]
     Active Substance: AMOXICILLIN
     Indication: C-REACTIVE PROTEIN INCREASED
     Route: 048
  10. SERTRALINE [Suspect]
     Active Substance: SERTRALINE HYDROCHLORIDE
     Indication: BIPOLAR DISORDER
     Route: 048
  11. LAMOTRIGIN [Suspect]
     Active Substance: LAMOTRIGINE
     Indication: BIPOLAR DISORDER
     Route: 048
  12. SEROQUEL [Suspect]
     Active Substance: QUETIAPINE FUMARATE
     Indication: BIPOLAR DISORDER
     Route: 048
  13. L-THYROXIN [Concomitant]
     Active Substance: LEVOTHYROXINE SODIUM
     Indication: HYPOTHYROIDISM
     Dosage: 100 [MICROG (BIS 75)]
     Route: 048

REACTIONS (4)
  - Polyhydramnios [Unknown]
  - Gestational diabetes [Unknown]
  - Premature labour [Unknown]
  - Exposure during pregnancy [Unknown]
